FAERS Safety Report 21118738 (Version 6)
Quarter: 2025Q2

REPORT INFORMATION
  Report Type: Spontaneous
  Country: DE (occurrence: DE)
  Receive Date: 20220722
  Receipt Date: 20250506
  Transmission Date: 20250716
  Serious: Yes (Hospitalization, Other)
  Sender: RANBAXY
  Company Number: DE-SUN PHARMACEUTICAL INDUSTRIES LTD-2022RR-345699

PATIENT
  Age: 66 Year
  Sex: Male
  Weight: 119 kg

DRUGS (53)
  1. RAMIPRIL [Suspect]
     Active Substance: RAMIPRIL
     Indication: Product used for unknown indication
     Dosage: 5 MG, QD (2.5 MG, BID (1-0-1))
     Route: 065
  2. RAMIPRIL [Suspect]
     Active Substance: RAMIPRIL
     Dosage: 2.5 MG, Q12H (2.5 MG, TWICE DAILY (1-0-1)
     Route: 065
  3. SIMVASTATIN [Suspect]
     Active Substance: SIMVASTATIN
     Indication: Product used for unknown indication
     Dosage: 20 MG, QD (0-0-1)
     Route: 065
  4. TAMSULOSIN [Suspect]
     Active Substance: TAMSULOSIN
     Indication: Product used for unknown indication
     Dosage: 0.4 MILLIGRAM, DAILY
     Route: 065
  5. COSENTYX [Suspect]
     Active Substance: SECUKINUMAB
     Indication: Psoriasis
     Dosage: 300 MG, QMO
     Route: 058
     Dates: start: 20160112, end: 20160119
  6. COSENTYX [Suspect]
     Active Substance: SECUKINUMAB
     Indication: Psoriatic arthropathy
  7. ASPIRIN [Suspect]
     Active Substance: ASPIRIN
     Indication: Product used for unknown indication
     Dosage: 100 MG, QD (1-0-0)
     Route: 065
  8. TICAGRELOR [Concomitant]
     Active Substance: TICAGRELOR
     Indication: Product used for unknown indication
     Route: 065
  9. TICAGRELOR [Concomitant]
     Active Substance: TICAGRELOR
     Route: 065
  10. TICAGRELOR [Concomitant]
     Active Substance: TICAGRELOR
     Route: 065
  11. ATORVASTATIN [Concomitant]
     Active Substance: ATORVASTATIN
     Indication: Product used for unknown indication
     Route: 065
  12. ATORVASTATIN [Concomitant]
     Active Substance: ATORVASTATIN
     Route: 065
  13. PANTOPRAZOLE [Concomitant]
     Active Substance: PANTOPRAZOLE
     Indication: Product used for unknown indication
     Route: 065
  14. PANTOPRAZOLE [Concomitant]
     Active Substance: PANTOPRAZOLE
     Dosage: 40 MG, QD (UNK UNK, QD (1-0-0))
     Route: 065
  15. PANTOPRAZOLE [Concomitant]
     Active Substance: PANTOPRAZOLE
     Route: 065
  16. PANTOPRAZOLE [Concomitant]
     Active Substance: PANTOPRAZOLE
     Dosage: 40 MG (1-0-1, THEN 1-0-0 FOR 2 WEEKS)
     Route: 065
  17. PANTOPRAZOLE [Concomitant]
     Active Substance: PANTOPRAZOLE
     Dosage: 40 MG, QD (UNK, QD (1-0-0))
     Route: 065
  18. PANTOPRAZOLE [Concomitant]
     Active Substance: PANTOPRAZOLE
     Route: 065
  19. PANTOPRAZOLE [Concomitant]
     Active Substance: PANTOPRAZOLE
     Dosage: 40 MG, QD (UNK, QD, (1-0-0))
     Route: 065
  20. PANTOPRAZOLE [Concomitant]
     Active Substance: PANTOPRAZOLE
     Dosage: 40 MG, QD (1-0-1, THEN 1-0-0 FOR 2 WEEKS)
     Route: 065
  21. PANTOPRAZOLE [Concomitant]
     Active Substance: PANTOPRAZOLE
     Route: 065
  22. PANTOPRAZOLE [Concomitant]
     Active Substance: PANTOPRAZOLE
     Dosage: 40 MG, QD
     Route: 065
  23. PANTOPRAZOLE [Concomitant]
     Active Substance: PANTOPRAZOLE
     Dosage: 40 MG, QD (UNK, QD, (1-0-0))
     Route: 065
  24. PANTOPRAZOLE [Concomitant]
     Active Substance: PANTOPRAZOLE
     Route: 065
  25. PANTOPRAZOLE [Concomitant]
     Active Substance: PANTOPRAZOLE
     Route: 065
  26. PANTOPRAZOLE [Concomitant]
     Active Substance: PANTOPRAZOLE
     Route: 065
  27. PANTOPRAZOLE [Concomitant]
     Active Substance: PANTOPRAZOLE
     Route: 065
  28. BISOPROLOL [Concomitant]
     Active Substance: BISOPROLOL
     Indication: Product used for unknown indication
     Route: 065
  29. BISOPROLOL [Concomitant]
     Active Substance: BISOPROLOL
     Route: 065
  30. BISOPROLOL [Concomitant]
     Active Substance: BISOPROLOL
     Route: 065
  31. CANDESARTAN [Concomitant]
     Active Substance: CANDESARTAN
     Indication: Product used for unknown indication
     Route: 065
  32. CANDESARTAN [Concomitant]
     Active Substance: CANDESARTAN
     Route: 065
  33. CLOPIDOGREL [Concomitant]
     Active Substance: CLOPIDOGREL BISULFATE
     Indication: Product used for unknown indication
     Route: 065
  34. CLOPIDOGREL [Concomitant]
     Active Substance: CLOPIDOGREL BISULFATE
     Route: 065
  35. CLOPIDOGREL [Concomitant]
     Active Substance: CLOPIDOGREL BISULFATE
     Route: 065
  36. TADALAFIL [Concomitant]
     Active Substance: TADALAFIL
     Indication: Product used for unknown indication
     Route: 065
  37. TADALAFIL [Concomitant]
     Active Substance: TADALAFIL
     Route: 065
  38. TADALAFIL [Concomitant]
     Active Substance: TADALAFIL
     Route: 065
  39. AMOXICILLIN\CLAVULANIC ACID [Concomitant]
     Active Substance: AMOXICILLIN\CLAVULANIC ACID
     Indication: Gastrointestinal inflammation
     Route: 065
  40. AMOXICILLIN\CLAVULANIC ACID [Concomitant]
     Active Substance: AMOXICILLIN\CLAVULANIC ACID
     Indication: Gastrointestinal inflammation
     Route: 065
  41. AMOXICILLIN\CLAVULANIC ACID [Concomitant]
     Active Substance: AMOXICILLIN\CLAVULANIC ACID
     Route: 065
  42. AMOXICILLIN\CLAVULANIC ACID [Concomitant]
     Active Substance: AMOXICILLIN\CLAVULANIC ACID
     Route: 065
  43. AMOXICILLIN\CLAVULANIC ACID [Concomitant]
     Active Substance: AMOXICILLIN\CLAVULANIC ACID
     Route: 065
  44. AMOXICILLIN\CLAVULANIC ACID [Concomitant]
     Active Substance: AMOXICILLIN\CLAVULANIC ACID
     Route: 065
  45. METRONIDAZOLE [Concomitant]
     Active Substance: METRONIDAZOLE
     Indication: Gastrointestinal inflammation
     Route: 065
  46. METRONIDAZOLE [Concomitant]
     Active Substance: METRONIDAZOLE
     Indication: Gastrointestinal inflammation
     Route: 065
  47. METRONIDAZOLE [Concomitant]
     Active Substance: METRONIDAZOLE
     Route: 065
  48. METRONIDAZOLE [Concomitant]
     Active Substance: METRONIDAZOLE
     Route: 065
  49. ATORVASTATIN CALCIUM [Concomitant]
     Active Substance: ATORVASTATIN CALCIUM
     Indication: Product used for unknown indication
     Route: 065
  50. Ni li an [Concomitant]
     Indication: Product used for unknown indication
     Route: 065
  51. Tadalafil al [Concomitant]
     Indication: Product used for unknown indication
     Route: 065
  52. METRONIDAZOLE [Concomitant]
     Active Substance: METRONIDAZOLE
     Indication: Product used for unknown indication
     Route: 065
  53. METRONIDAZOLE [Concomitant]
     Active Substance: METRONIDAZOLE
     Route: 065

REACTIONS (52)
  - Hepatic steatosis [Recovered/Resolved]
  - Pancreatitis acute [Recovered/Resolved]
  - Acute myocardial infarction [Recovered/Resolved]
  - Thrombosis [Unknown]
  - Blood glucose increased [Unknown]
  - Benign prostatic hyperplasia [Unknown]
  - Blood creatinine increased [Recovered/Resolved]
  - Obesity [Unknown]
  - Red blood cell count decreased [Unknown]
  - Haematocrit decreased [Unknown]
  - Renal cyst [Unknown]
  - Chest discomfort [Unknown]
  - Lipase increased [Unknown]
  - General physical health deterioration [Unknown]
  - Haemoglobin decreased [Unknown]
  - White blood cell count increased [Recovered/Resolved]
  - Abdominal pain upper [Unknown]
  - C-reactive protein increased [Unknown]
  - Haematochezia [Recovered/Resolved]
  - Chronic coronary syndrome [Not Recovered/Not Resolved]
  - Coronary artery stenosis [Recovered/Resolved]
  - Renal cyst [Unknown]
  - Haemorrhoids [Recovered/Resolved]
  - Hiatus hernia [Recovered/Resolved]
  - Gastrooesophageal reflux disease [Recovered/Resolved]
  - Diverticulum intestinal haemorrhagic [Recovered/Resolved]
  - Myocardial infarction [Recovered/Resolved]
  - Diverticulum intestinal haemorrhagic [Recovered/Resolved]
  - Colitis [Recovered/Resolved]
  - Gastritis [Recovered/Resolved]
  - Intestinal polyp [Unknown]
  - Aortic aneurysm [Unknown]
  - Granuloma [Recovered/Resolved]
  - Benign prostatic hyperplasia [Unknown]
  - Blood alkaline phosphatase increased [Unknown]
  - Mean cell haemoglobin increased [Unknown]
  - Rectal haemorrhage [Unknown]
  - Pancreatitis acute [Recovered/Resolved]
  - Diverticulum [Recovered/Resolved]
  - Diverticulum intestinal haemorrhagic [Recovered/Resolved]
  - Diverticulum intestinal haemorrhagic [Recovered/Resolved]
  - Diverticulum intestinal haemorrhagic [Recovered/Resolved]
  - Hepatic steatosis [Recovered/Resolved]
  - Diverticulum intestinal haemorrhagic [Recovered/Resolved]
  - Blood loss anaemia [Recovered/Resolved]
  - Anaemia [Recovered/Resolved]
  - Gastritis erosive [Unknown]
  - Large intestine polyp [Unknown]
  - Diverticulum [Recovered/Resolved]
  - Disease recurrence [Recovered/Resolved]
  - Haematochezia [Recovered/Resolved]
  - Haemorrhoids [Recovered/Resolved]

NARRATIVE: CASE EVENT DATE: 20200601
